FAERS Safety Report 10452227 (Version 4)
Quarter: 2014Q4

REPORT INFORMATION
  Report Type: Report from Study
  Country: CA (occurrence: CA)
  Receive Date: 20140915
  Receipt Date: 20141105
  Transmission Date: 20150528
  Serious: Yes (Other)
  Sender: FDA-Public Use
  Company Number: PHHY2014CA030304

PATIENT
  Age: 46 Year
  Sex: Female

DRUGS (2)
  1. SANDOSTATIN LAR DEPOT [Suspect]
     Active Substance: OCTREOTIDE ACETATE
     Indication: PANCREATITIS
     Dosage: 30 MG, EVERY 4 WEEKS
     Route: 030
     Dates: start: 20140325, end: 20141008
  2. SANDOSTATIN [Suspect]
     Active Substance: OCTREOTIDE ACETATE
     Indication: PANCREATITIS
     Dosage: UNK UG, TID
     Route: 058
     Dates: start: 201304, end: 2013

REACTIONS (8)
  - Breast cancer [Unknown]
  - Hypokinesia [Unknown]
  - Injection site pain [Unknown]
  - Rash generalised [Unknown]
  - Pain [Unknown]
  - Slow speech [Unknown]
  - Blood pressure diastolic decreased [Unknown]
  - Dizziness [Unknown]

NARRATIVE: CASE EVENT DATE: 20140813
